FAERS Safety Report 8621952-X (Version None)
Quarter: 2012Q3

REPORT INFORMATION
  Report Type: 
  Country: None (occurrence: None)
  Receive Date: 20120823
  Receipt Date: 20120823
  Transmission Date: 20120928
  Serious: No
  Sender: FDA-Public Use
  Company Number: None

PATIENT
  Age: 68 Year
  Sex: Female
  Weight: 112.0385 kg

DRUGS (2)
  1. AVASTIN [Concomitant]
  2. CARBOPLATIN [Suspect]
     Indication: OVARIAN CANCER METASTATIC
     Dosage: 400MG-AFTER 3W-IVSS
     Dates: start: 20120731

REACTIONS (4)
  - FLUSHING [None]
  - NAUSEA [None]
  - CHEST PAIN [None]
  - FEELING HOT [None]
